FAERS Safety Report 11287761 (Version 1)
Quarter: 2015Q3

REPORT INFORMATION
  Report Type: Spontaneous
  Country: US (occurrence: None)
  Receive Date: 20150720
  Receipt Date: 20150720
  Transmission Date: 20151125
  Serious: Yes (Hospitalization)
  Sender: FDA-Public Use
  Company Number: None

PATIENT
  Age: 74 Year
  Sex: Female

DRUGS (12)
  1. MAGNESIUM [Concomitant]
     Active Substance: MAGNESIUM
  2. LASIX [Concomitant]
     Active Substance: FUROSEMIDE
  3. MIRAPEX [Concomitant]
     Active Substance: PRAMIPEXOLE DIHYDROCHLORIDE
  4. SPIRONOLACTONE 50 MG [Suspect]
     Active Substance: SPIRONOLACTONE
     Indication: LYMPHOEDEMA
     Dosage: 1 PILL
     Route: 048
     Dates: start: 20150530, end: 20150710
  5. ATORVASTATIN [Concomitant]
     Active Substance: ATORVASTATIN
  6. KLOR-CON [Concomitant]
     Active Substance: POTASSIUM CHLORIDE
  7. SPIRONOLACTONE 50 MG [Suspect]
     Active Substance: SPIRONOLACTONE
     Indication: DIURETIC THERAPY
     Dosage: 1 PILL
     Route: 048
     Dates: start: 20150530, end: 20150710
  8. AMLODIPINE [Concomitant]
     Active Substance: AMLODIPINE BESYLATE
  9. MULTIVITS [Concomitant]
  10. TAMOXIFEN [Concomitant]
     Active Substance: TAMOXIFEN
  11. CALCIUM CITRATE [Concomitant]
     Active Substance: CALCIUM CITRATE
  12. GARLIC. [Concomitant]
     Active Substance: GARLIC

REACTIONS (2)
  - Dyspnoea [None]
  - Fatigue [None]

NARRATIVE: CASE EVENT DATE: 20150623
